FAERS Safety Report 8576368-1 (Version None)
Quarter: 2012Q3

REPORT INFORMATION
  Report Type: 
  Country: None (occurrence: None)
  Receive Date: 20120807
  Receipt Date: 20120803
  Transmission Date: 20120928
  Serious: Yes (Life-Threatening, Hospitalization, Other)
  Sender: FDA-Public Use
  Company Number: FR-ASTRAZENECA-2012SE48912

PATIENT
  Age: 28253 Day
  Sex: Female
  Weight: 57 kg

DRUGS (6)
  1. LEVOTHYROXINE SODIUM [Concomitant]
     Indication: HYPOTHYROIDISM
     Route: 048
     Dates: start: 20120301
  2. VALSARTAN  AND HYDROCHLOROTHIAZIDE [Concomitant]
     Indication: HYPERTENSION
     Dosage: 160 MG/12.5 MG PER DAY
     Route: 048
     Dates: start: 20120301
  3. SEROQUEL [Suspect]
     Indication: BIPOLAR I DISORDER
     Route: 048
     Dates: start: 20120629, end: 20120629
  4. GALANTAMINE HYDROBROMIDE [Concomitant]
     Indication: DEMENTIA
     Route: 048
     Dates: start: 20120301
  5. MICROPAKINE [Concomitant]
     Indication: BIPOLAR I DISORDER
     Route: 048
     Dates: start: 20120622
  6. IXEL [Concomitant]
     Indication: BIPOLAR I DISORDER
     Route: 048
     Dates: start: 20120301

REACTIONS (3)
  - SOMNOLENCE [None]
  - HYPOTENSION [None]
  - SHOCK [None]
